FAERS Safety Report 11991828 (Version 1)
Quarter: 2016Q1

REPORT INFORMATION
  Report Type: Spontaneous
  Country: US (occurrence: US)
  Receive Date: 20160203
  Receipt Date: 20160203
  Transmission Date: 20160526
  Serious: No
  Sender: FDA-Public Use
  Company Number: US-JNJFOC-20151204680

PATIENT
  Sex: Male

DRUGS (1)
  1. INVEGA TRINZA [Suspect]
     Active Substance: PALIPERIDONE PALMITATE
     Indication: SCHIZOPHRENIA
     Route: 030
     Dates: start: 20150903, end: 2015

REACTIONS (9)
  - Hallucination [Unknown]
  - Aphasia [Unknown]
  - Catatonia [Unknown]
  - Paranoia [Unknown]
  - Hypophagia [Unknown]
  - Decreased eye contact [Unknown]
  - Weight decreased [Unknown]
  - Flat affect [Unknown]
  - Poor personal hygiene [Unknown]

NARRATIVE: CASE EVENT DATE: 2015
